FAERS Safety Report 20201910 (Version 1)
Quarter: 2021Q4

REPORT INFORMATION
  Report Type: Spontaneous
  Country: US (occurrence: US)
  Receive Date: 20211217
  Receipt Date: 20211217
  Transmission Date: 20220303
  Serious: Yes (Other)
  Sender: FDA-Public Use
  Company Number: US-TEVA-2021-US-1986931

PATIENT
  Sex: Male

DRUGS (2)
  1. TESTOSTERONE [Suspect]
     Active Substance: TESTOSTERONE
     Indication: Hypogonadism
     Route: 065
  2. APIXABAN [Suspect]
     Active Substance: APIXABAN
     Indication: Portal vein thrombosis
     Route: 048

REACTIONS (5)
  - Intentional product misuse [Unknown]
  - Polycythaemia [Recovering/Resolving]
  - Portal vein thrombosis [Recovering/Resolving]
  - Treatment failure [Unknown]
  - Off label use [Unknown]
